FAERS Safety Report 8127265-7 (Version None)
Quarter: 2012Q1

REPORT INFORMATION
  Report Type: 
  Country: None (occurrence: None)
  Receive Date: 20120210
  Receipt Date: 20120207
  Transmission Date: 20120608
  Serious: No
  Sender: FDA-Public Use
  Company Number: PHEH2012US003413

PATIENT
  Sex: Female

DRUGS (3)
  1. SYNTHROID [Concomitant]
  2. ZOCOR [Concomitant]
  3. TASIGNA [Suspect]
     Dosage: 300 MG, BID
     Route: 048
     Dates: start: 20110801

REACTIONS (5)
  - CONSTIPATION [None]
  - RASH PRURITIC [None]
  - RASH GENERALISED [None]
  - ALOPECIA [None]
  - DRY SKIN [None]
